FAERS Safety Report 11994857 (Version 1)
Quarter: 2016Q1

REPORT INFORMATION
  Report Type: Report from Study
  Country: BR (occurrence: BR)
  Receive Date: 20160203
  Receipt Date: 20160203
  Transmission Date: 20160526
  Serious: Yes (Hospitalization, Other)
  Sender: FDA-Public Use
  Company Number: PHHY2016BR013681

PATIENT
  Sex: Female
  Weight: 63 kg

DRUGS (1)
  1. ACLASTA [Suspect]
     Active Substance: ZOLEDRONIC ACID
     Indication: OSTEOPOROSIS
     Dosage: 5 MG, Q12MO
     Route: 042
     Dates: start: 20150320

REACTIONS (10)
  - Flavivirus infection [Recovering/Resolving]
  - Arthralgia [Unknown]
  - Hypoaesthesia [Unknown]
  - Intervertebral disc disorder [Unknown]
  - Urinary tract infection [Unknown]
  - Pneumonia [Unknown]
  - Pyrexia [Unknown]
  - Abasia [Unknown]
  - Spinal disorder [Unknown]
  - Muscular weakness [Unknown]
